FAERS Safety Report 22293988 (Version 1)
Quarter: 2023Q2

REPORT INFORMATION
  Report Type: Spontaneous
  Country: None (occurrence: BR)
  Receive Date: 20230508
  Receipt Date: 20230508
  Transmission Date: 20230721
  Serious: Yes (Other)
  Sender: FDA-Public Use
  Company Number: BR-Ascend Therapeutics US, LLC-2141211

PATIENT
  Age: 62 Year
  Sex: Female

DRUGS (4)
  1. ESTROGEL [Suspect]
     Active Substance: ESTRADIOL
     Indication: Hormone replacement therapy
     Route: 065
  2. ESTRADIOL [Suspect]
     Active Substance: ESTRADIOL
     Route: 065
  3. UTROGESTAN [Suspect]
     Active Substance: PROGESTERONE
     Route: 065
  4. VAGIFEM [Suspect]
     Active Substance: ESTRADIOL
     Route: 065

REACTIONS (1)
  - Urinary retention [Unknown]
